FAERS Safety Report 14986719 (Version 1)
Quarter: 2018Q2

REPORT INFORMATION
  Report Type: Spontaneous
  Country: FR (occurrence: FR)
  Receive Date: 20180608
  Receipt Date: 20180608
  Transmission Date: 20180711
  Serious: Yes (Hospitalization, Other)
  Sender: FDA-Public Use
  Company Number: FR-BIOVERATIV-2018BV000029

PATIENT
  Age: 68 Year
  Sex: Male
  Weight: 65 kg

DRUGS (4)
  1. ELOCTA [Suspect]
     Active Substance: EFMOROCTOCOG ALFA
     Dosage: TREATED FOR A HIP PROSTHESIS WITH AN UNKNOWN HIGHER DOSE
     Route: 065
     Dates: start: 20180109
  2. ELOCTA [Suspect]
     Active Substance: EFMOROCTOCOG ALFA
     Dosage: TREATED FOR A HIP PROSTHESIS (RECEIVED UNKNOWN HIGHER DOSE AT THE BEGINNING OF THE SURGERY ON 09-JAN
     Route: 065
     Dates: start: 20180115, end: 20180115
  3. ELOCTA [Suspect]
     Active Substance: EFMOROCTOCOG ALFA
     Dosage: PATIENT RECEIVED 2 INJECTIONS FOR A CORONARY ANGIOGRAPHY
     Route: 065
     Dates: start: 20171205, end: 201712
  4. ELOCTA [Suspect]
     Active Substance: EFMOROCTOCOG ALFA
     Indication: FACTOR VIII DEFICIENCY
     Dosage: PATIENT RECEIVED 2 INJECTIONS FOR A CORONARY ANGIOGRAPHY
     Route: 065
     Dates: start: 20171205, end: 201712

REACTIONS (1)
  - Factor VIII inhibition [Recovered/Resolved]

NARRATIVE: CASE EVENT DATE: 20180115
